FAERS Safety Report 5874308-7 (Version None)
Quarter: 2008Q3

REPORT INFORMATION
  Report Type: 
  Country: None (occurrence: None)
  Receive Date: 20080908
  Receipt Date: 20080828
  Transmission Date: 20090109
  Serious: Yes (Other)
  Sender: FDA-Public Use
  Company Number: US-TYCO HEALTHCARE/MALLINCKRODT-T200801206

PATIENT

DRUGS (19)
  1. OPTIMARK IN PLASTIC SYRINGES [Suspect]
     Indication: NUCLEAR MAGNETIC RESONANCE IMAGING
     Dosage: 32 ML, SINGLE
     Dates: start: 20060619, end: 20060619
  2. PROGRAF [Concomitant]
     Indication: PROPHYLAXIS AGAINST TRANSPLANT REJECTION
     Dosage: 3 MG, Q 12 HR
  3. PREDNISONE [Concomitant]
     Indication: PROPHYLAXIS AGAINST TRANSPLANT REJECTION
     Dosage: 10 MG, QD
  4. METOPROLOL TARTRATE [Concomitant]
     Indication: HYPERTENSION
     Dosage: 50 MG, Q 12 HR
  5. NEXIUM [Concomitant]
     Indication: HYPERTENSION
     Dosage: 40 MG, Q 12 HR
  6. NORVASC [Concomitant]
     Indication: HYPERTENSION
     Dosage: 5 MG, QD
  7. SENSIPAS [Concomitant]
     Indication: BLOOD CALCIUM ABNORMAL
     Dosage: 30 MG, QD
  8. LYRICA [Concomitant]
     Indication: NEURALGIA
     Dosage: 50 MG, Q 12 HR
  9. HYDRALAZINE HCL [Concomitant]
     Indication: HYPERTENSION
     Dosage: 50 MG, Q 12 HR
  10. ASPIRIN [Concomitant]
     Indication: PAIN
     Dosage: 8 MG, QD
  11. CLONIDINE [Concomitant]
     Indication: HYPERTENSION
     Dosage: .4 MG, Q 12 HR
  12. LOTENSIN                           /00909102/ [Concomitant]
     Indication: HYPERTENSION
     Dosage: 40 MG, QD
     Dates: start: 20060101, end: 20070301
  13. VANCOMYCIN HYDROCHLORIDE [Concomitant]
     Indication: INFECTION
     Dates: start: 20061101, end: 20070101
  14. CALCITROL                          /00508501/ [Concomitant]
     Indication: VITAMIN SUPPLEMENTATION
     Dosage: .25 MG, Q MWF
     Dates: start: 20060101, end: 20070301
  15. NEPHROCAPS [Concomitant]
     Indication: VITAMIN SUPPLEMENTATION
     Dosage: UNK, QD
     Dates: start: 20060101, end: 20070301
  16. ERYTHROPOETIN [Concomitant]
     Indication: RENAL FAILURE
     Dates: start: 20060101, end: 20070301
  17. RENAGEL                            /01459901/ [Concomitant]
     Indication: RENAL FAILURE
  18. ADENOSINE [Concomitant]
     Indication: CARDIAC STRESS TEST
     Dosage: 34.5 MG, SINGLE
  19. SODIUM CHLORIDE [Concomitant]
     Indication: DRUG USE FOR UNKNOWN INDICATION
     Dosage: 70 ML, UNK

REACTIONS (1)
  - NEPHROGENIC SYSTEMIC FIBROSIS [None]
